FAERS Safety Report 7957611-6 (Version None)
Quarter: 2011Q4

REPORT INFORMATION
  Report Type: 
  Country: None (occurrence: None)
  Receive Date: 20111205
  Receipt Date: 20111120
  Transmission Date: 20120403
  Serious: Yes (Other)
  Sender: FDA-Public Use
  Company Number: PHEH2011US009691

PATIENT
  Sex: Male

DRUGS (10)
  1. SPIRIVA [Concomitant]
  2. LISINOPRIL [Concomitant]
  3. SIMVASTATIN [Concomitant]
  4. ADVAIR DISKUS 100/50 [Concomitant]
  5. FINASTERIDE [Concomitant]
  6. FUROSEMIDE [Concomitant]
  7. TASIGNA [Suspect]
     Dosage: 150 MG, BID
     Route: 048
  8. METOPROLOL [Concomitant]
  9. TASIGNA [Suspect]
     Indication: CHRONIC MYELOID LEUKAEMIA
     Dosage: 300 MG, BID
     Route: 048
     Dates: start: 20111116
  10. BILTIAGEN [Suspect]

REACTIONS (3)
  - CONSTIPATION [None]
  - CHRONIC OBSTRUCTIVE PULMONARY DISEASE [None]
  - DYSPNOEA [None]
